FAERS Safety Report 9494529 (Version 1)
Quarter: 2013Q3

REPORT INFORMATION
  Report Type: Spontaneous
  Country: US (occurrence: US)
  Receive Date: 20130903
  Receipt Date: 20130903
  Transmission Date: 20140515
  Serious: Yes (Other)
  Sender: FDA-Public Use
  Company Number: US-PFIZER INC-2013252297

PATIENT
  Age: 66 Year
  Sex: Female
  Weight: 83.9 kg

DRUGS (1)
  1. NEURONTIN [Suspect]
     Dosage: UNK
     Dates: start: 2005, end: 201305

REACTIONS (9)
  - Back disorder [Unknown]
  - Weight decreased [Unknown]
  - Hypoaesthesia [Unknown]
  - Back pain [Unknown]
  - Hypokinesia [Unknown]
  - Gait disturbance [Unknown]
  - Pain [Unknown]
  - Feeling abnormal [Unknown]
  - Body height decreased [Unknown]
